FAERS Safety Report 10257805 (Version 1)
Quarter: 2014Q2

REPORT INFORMATION
  Report Type: Spontaneous
  Country: CA (occurrence: None)
  Receive Date: 20140620
  Receipt Date: 20140620
  Transmission Date: 20141212
  Serious: Yes (Other)
  Sender: FDA-Public Use
  Company Number: 2014CA00544

PATIENT
  Age: 63 Year
  Sex: Male

DRUGS (2)
  1. TERBINAFINE [Suspect]
     Indication: ONYCHOMYCOSIS
     Dosage: 250MG/DAY ORAL
     Route: 048
  2. METOPROLOL (METOPROLOL) [Suspect]
     Indication: CORONARY ARTERY DISEASE
     Dosage: 250MG/DAY

REACTIONS (5)
  - Drug interaction [None]
  - Sinus bradycardia [None]
  - Confusional state [None]
  - Fall [None]
  - General physical health deterioration [None]
